FAERS Safety Report 7646697-4 (Version None)
Quarter: 2011Q3

REPORT INFORMATION
  Report Type: 
  Country: None (occurrence: None)
  Receive Date: 20110729
  Receipt Date: 20110729
  Transmission Date: 20111222
  Serious: Yes (Hospitalization, Disabling, Other)
  Sender: FDA-Public Use
  Company Number: None

PATIENT
  Age: 50 Year
  Sex: Female
  Weight: 97.5234 kg

DRUGS (1)
  1. SERTRALINE HYDROCHLORIDE [Suspect]
     Indication: FIBROMYALGIA
     Dosage: 25MG 1 A DAY
     Dates: start: 20110125, end: 20110205

REACTIONS (8)
  - PALPITATIONS [None]
  - BLINDNESS UNILATERAL [None]
  - DEPRESSION [None]
  - OPTIC NEURITIS [None]
  - EUPHORIC MOOD [None]
  - CHEST DISCOMFORT [None]
  - HEADACHE [None]
  - OPTIC ISCHAEMIC NEUROPATHY [None]
